FAERS Safety Report 5287845-3 (Version None)
Quarter: 2007Q2

REPORT INFORMATION
  Report Type: 
  Country: None (occurrence: None)
  Receive Date: 20070405
  Receipt Date: 20070326
  Transmission Date: 20071010
  Serious: Yes (Hospitalization, Other)
  Sender: FDA-Public Use
  Company Number: PHEH2007US02896

PATIENT
  Age: 52 Year
  Sex: Male

DRUGS (6)
  1. ZOMETA [Suspect]
     Indication: METASTASES TO BONE
     Dosage: UNK, UNK
     Route: 042
     Dates: start: 20020701, end: 20060501
  2. PAMIDRONATE DISODIUM [Suspect]
     Indication: PROSTATE CANCER
     Route: 042
  3. ELIGARD [Suspect]
     Indication: PROSTATE CANCER STAGE I
     Dosage: 7.5 MG, QMO
     Route: 058
  4. ELIGARD [Suspect]
     Dosage: 7.5 MG, Q3MO
     Route: 058
     Dates: start: 20020101, end: 20060201
  5. FLOMAX [Concomitant]
  6. CASODEX [Concomitant]
     Dosage: 50 MG, QD

REACTIONS (32)
  - ALOPECIA [None]
  - ARTHRALGIA [None]
  - BACK PAIN [None]
  - BLADDER INJURY [None]
  - BONE PAIN [None]
  - CHEST PAIN [None]
  - CONSTIPATION [None]
  - DEPRESSION [None]
  - DERMATITIS [None]
  - FATIGUE [None]
  - GOUT [None]
  - GYNAECOMASTIA [None]
  - HEADACHE [None]
  - HOT FLUSH [None]
  - HYPERGLYCAEMIA [None]
  - HYPERNATRAEMIA [None]
  - HYPERTONIC BLADDER [None]
  - INSOMNIA [None]
  - MENTAL DISORDER [None]
  - METASTASES TO BONE [None]
  - MUSCLE ATROPHY [None]
  - MUSCLE SPASMS [None]
  - MYALGIA [None]
  - OEDEMA [None]
  - PAIN [None]
  - PAIN IN EXTREMITY [None]
  - PANCREATIC NEOPLASM [None]
  - POLLAKIURIA [None]
  - SYNCOPE [None]
  - TESTICULAR PAIN [None]
  - TREMOR [None]
  - WEIGHT INCREASED [None]
